FAERS Safety Report 21161832 (Version 2)
Quarter: 2022Q3

REPORT INFORMATION
  Report Type: Spontaneous
  Country: US (occurrence: US)
  Receive Date: 20220802
  Receipt Date: 20220807
  Transmission Date: 20221027
  Serious: No
  Sender: FDA-Public Use
  Company Number: US-ELI_LILLY_AND_COMPANY-US202207006911

PATIENT
  Age: 83 Year
  Sex: Female

DRUGS (5)
  1. HUMALOG [Suspect]
     Active Substance: INSULIN LISPRO
     Indication: Hyperglycaemia
     Dosage: UNK UNK, UNKNOWN
     Route: 065
     Dates: start: 202205
  2. HUMALOG [Suspect]
     Active Substance: INSULIN LISPRO
     Indication: Hyperglycaemia
     Dosage: UNK UNK, UNKNOWN
     Route: 065
     Dates: start: 202205
  3. HUMALOG [Suspect]
     Active Substance: INSULIN LISPRO
     Dosage: UNK UNK, UNKNOWN
     Route: 065
     Dates: end: 20220714
  4. HUMALOG [Suspect]
     Active Substance: INSULIN LISPRO
     Dosage: UNK UNK, UNKNOWN
     Route: 065
     Dates: end: 20220714
  5. TRULICITY [Suspect]
     Active Substance: DULAGLUTIDE
     Indication: Hyperglycaemia
     Dosage: 0.75 MG, UNKNOWN
     Route: 065
     Dates: start: 20220715

REACTIONS (4)
  - Blood glucose increased [Unknown]
  - Diarrhoea [Not Recovered/Not Resolved]
  - Injection site haemorrhage [Unknown]
  - Injection site erythema [Unknown]

NARRATIVE: CASE EVENT DATE: 20220715
